FAERS Safety Report 6078804-1 (Version None)
Quarter: 2009Q1

REPORT INFORMATION
  Report Type: 
  Country: None (occurrence: None)
  Receive Date: 20090216
  Receipt Date: 20080121
  Transmission Date: 20090719
  Serious: No
  Sender: FDA-Public Use
  Company Number: US-BAYER-200810373BCC

PATIENT
  Age: 23 Month
  Sex: Male

DRUGS (4)
  1. RID SHAMPOO [Suspect]
     Indication: LICE INFESTATION
     Route: 061
     Dates: start: 20080108
  2. RID SHAMPOO [Suspect]
     Route: 061
     Dates: start: 20080101
  3. RID MOUSSE [Suspect]
     Indication: LICE INFESTATION
     Route: 061
     Dates: start: 20080108
  4. NIX [Concomitant]

REACTIONS (2)
  - LICE INFESTATION [None]
  - PRURITUS [None]
